FAERS Safety Report 9526052 (Version 3)
Quarter: 2013Q3

REPORT INFORMATION
  Report Type: Spontaneous
  Country: JP (occurrence: JP)
  Receive Date: 20130916
  Receipt Date: 20130927
  Transmission Date: 20140515
  Serious: Yes (Death, Life-Threatening, Other)
  Sender: FDA-Public Use
  Company Number: JP-SANOFI-AVENTIS-2013SA050765

PATIENT
  Age: 60 Year
  Sex: Female
  Weight: 49 kg

DRUGS (14)
  1. ELPLAT [Suspect]
     Indication: APPENDIX CANCER
     Route: 041
     Dates: start: 20130301, end: 20130301
  2. ELPLAT [Suspect]
     Indication: APPENDIX CANCER
     Route: 041
     Dates: start: 20130322, end: 20130322
  3. ELPLAT [Suspect]
     Indication: APPENDIX CANCER
     Route: 041
     Dates: start: 20130412, end: 20130412
  4. XELODA [Suspect]
     Indication: APPENDIX CANCER
     Route: 048
     Dates: start: 20130301, end: 20130315
  5. XELODA [Suspect]
     Indication: APPENDIX CANCER
     Route: 048
     Dates: start: 20130322, end: 20130405
  6. XELODA [Suspect]
     Indication: APPENDIX CANCER
     Route: 048
     Dates: start: 20130412, end: 20130426
  7. AVASTIN [Concomitant]
     Indication: COLON CANCER
     Route: 041
     Dates: start: 20130301, end: 20130412
  8. GRANISETRON HYDROCHLORIDE [Concomitant]
     Dates: start: 20130301, end: 20130412
  9. DEXART [Concomitant]
     Dates: start: 20130301, end: 20130412
  10. EMEND [Concomitant]
     Dates: start: 20130301, end: 20130412
  11. GOSHAJINKIGAN [Concomitant]
     Dosage: GRANULE
     Dates: start: 20130301
  12. PLATELETS, HUMAN BLOOD [Concomitant]
     Dates: start: 20130510, end: 20130510
  13. CEFMETAZOLE SODIUM [Concomitant]
     Dates: start: 20130512, end: 20130512
  14. CEFEPIME HYDROCHLORIDE [Concomitant]
     Dates: start: 20130513, end: 20130522

REACTIONS (5)
  - Platelet count decreased [Fatal]
  - Infection [Fatal]
  - Haemoglobin decreased [Not Recovered/Not Resolved]
  - Malaise [Recovered/Resolved]
  - Hypoaesthesia [Recovered/Resolved]
